FAERS Safety Report 8225299 (Version 3)
Quarter: 2012Q4

REPORT INFORMATION
  Report Type: Spontaneous
  Country: US (occurrence: None)
  Receive Date: 20111026
  Receipt Date: 20120907
  Transmission Date: 20130627
  Serious: Yes (Hospitalization, Disabling, Other)
  Sender: FDA-Public Use
  Company Number: 2011MA015063

PATIENT
  Sex: Male
  Weight: 70.31 kg

DRUGS (26)
  1. METOCLOPRAMIDE [Suspect]
     Indication: GASTROOESOPHAGEAL REFLUX DISEASE
     Route: 048
     Dates: start: 1995, end: 20021123
  2. BUPROPION HYDROCHLORIDE [Concomitant]
  3. NEXIUM [Concomitant]
  4. ACIPHEX [Concomitant]
  5. AMLODIPINE [Concomitant]
  6. ATENOLOL [Concomitant]
  7. BUPROPION ER [Concomitant]
  8. BUPROPION SR [Concomitant]
  9. CIPROFLOXACIN [Concomitant]
  10. CYCLOBENZAPRINE [Concomitant]
  11. DILTIAZEM XR [Concomitant]
  12. DILTIAZEM XT [Concomitant]
  13. HYDROCODONE-APAP [Concomitant]
  14. HYDROMORPHONE [Concomitant]
  15. HYOMAX FT [Concomitant]
  16. LISINOPRIL [Concomitant]
  17. METHYLPREDNISOLONE [Concomitant]
  18. METRONIDAZOLE [Concomitant]
  19. MICARDIS HCT [Concomitant]
  20. OXYCODONE-APAP [Concomitant]
  21. PENICILLIN VK [Concomitant]
  22. PRAVACHOL [Concomitant]
  23. PROMETHAZINE [Concomitant]
  24. TRIAMTERENE-HCTZ [Concomitant]
  25. TRIFLURIDINE [Concomitant]
  26. ZYMAR [Concomitant]

REACTIONS (11)
  - Tardive dyskinesia [None]
  - Emotional disorder [None]
  - Family stress [None]
  - Cholelithotomy [None]
  - Nasopharyngitis [None]
  - Influenza [None]
  - Gastrooesophageal reflux disease [None]
  - Condition aggravated [None]
  - Ankle operation [None]
  - Cataract operation [None]
  - Deafness [None]
